FAERS Safety Report 26041462 (Version 1)
Quarter: 2025Q4

REPORT INFORMATION
  Report Type: Spontaneous
  Country: CH (occurrence: CH)
  Receive Date: 20251113
  Receipt Date: 20251113
  Transmission Date: 20260118
  Serious: Yes (Other)
  Sender: SOMERSET THERAPEUTICS, LLC
  Company Number: CH-MIT-25-75-CH-2025-SOM-LIT-00091

PATIENT
  Age: 94 Year
  Sex: Female

DRUGS (1)
  1. TIMOLOL MALEATE [Suspect]
     Active Substance: TIMOLOL MALEATE
     Indication: Product used for unknown indication
     Route: 061

REACTIONS (3)
  - Atrial fibrillation [Recovered/Resolved]
  - Sinus arrest [Recovered/Resolved]
  - Bradyarrhythmia [Recovered/Resolved]
